FAERS Safety Report 4654687-9 (Version None)
Quarter: 2005Q2

REPORT INFORMATION
  Report Type: 
  Country: None (occurrence: None)
  Receive Date: 20050505
  Receipt Date: 20050505
  Transmission Date: 20051028
  Serious: Yes (Other)
  Sender: FDA-Public Use
  Company Number: None

PATIENT
  Sex: Male
  Weight: 82.5547 kg

DRUGS (3)
  1. AZULFIDINE [Suspect]
     Indication: MAJOR DEPRESSION
     Dosage: PO
     Route: 048
  2. IBUPROFEN [Concomitant]
  3. XANAX [Concomitant]

REACTIONS (2)
  - AUTOIMMUNE DISORDER [None]
  - POLYNEUROPATHY [None]
